FAERS Safety Report 4498015-0 (Version None)
Quarter: 2004Q4

REPORT INFORMATION
  Report Type: 
  Country: None (occurrence: None)
  Receive Date: 20041109
  Receipt Date: 20041109
  Transmission Date: 20050328
  Serious: Yes (Other)
  Sender: FDA-Public Use
  Company Number: None

PATIENT
  Sex: Female
  Weight: 22.6799 kg

DRUGS (4)
  1. RITALIN [Suspect]
     Indication: ATTENTION DEFICIT/HYPERACTIVITY DISORDER
     Dosage: 15MG 2X A DAY
     Dates: start: 20040826, end: 20041022
  2. RITALIN [Suspect]
     Indication: SLEEP DISORDER
     Dosage: 15MG 2X A DAY
     Dates: start: 20040826, end: 20041022
  3. RITALIN [Suspect]
     Indication: ATTENTION DEFICIT/HYPERACTIVITY DISORDER
     Dosage: 10 MG 2X A DAY
     Dates: start: 20040501, end: 20040801
  4. RITALIN [Suspect]
     Indication: SLEEP DISORDER
     Dosage: 10 MG 2X A DAY
     Dates: start: 20040501, end: 20040801

REACTIONS (2)
  - ATTENTION DEFICIT/HYPERACTIVITY DISORDER [None]
  - DRUG INEFFECTIVE [None]
